FAERS Safety Report 25600058 (Version 2)
Quarter: 2025Q3

REPORT INFORMATION
  Report Type: Spontaneous
  Country: JP (occurrence: JP)
  Receive Date: 20250724
  Receipt Date: 20250807
  Transmission Date: 20251021
  Serious: Yes (Hospitalization, Other)
  Sender: ADVANZ PHARMA
  Company Number: JP-ADVANZ PHARMA-202507006102

PATIENT

DRUGS (5)
  1. ZONISAMIDE [Suspect]
     Active Substance: ZONISAMIDE
     Indication: Product used for unknown indication
     Route: 048
  2. CARBIDOPA\LEVODOPA [Concomitant]
     Active Substance: CARBIDOPA\LEVODOPA
  3. ONGENTYS [Concomitant]
     Active Substance: OPICAPONE
  4. NEUPRO [Concomitant]
     Active Substance: ROTIGOTINE
  5. ISTRADEFYLLINE [Concomitant]
     Active Substance: ISTRADEFYLLINE

REACTIONS (5)
  - Persecutory delusion [Recovering/Resolving]
  - Hallucination [Not Recovered/Not Resolved]
  - Somatic hallucination [Recovering/Resolving]
  - Hallucination, auditory [Recovering/Resolving]
  - Psychotic symptom [Recovering/Resolving]
